FAERS Safety Report 4462188-6 (Version None)
Quarter: 2004Q3

REPORT INFORMATION
  Report Type: 
  Country: None (occurrence: None)
  Receive Date: 20040924
  Receipt Date: 20040915
  Transmission Date: 20050211
  Serious: Yes (Hospitalization)
  Sender: FDA-Public Use
  Company Number: 2004UW19353

PATIENT
  Age: 77 Year
  Sex: Male

DRUGS (5)
  1. ATENOLOL [Suspect]
     Indication: HYPERTENSION
     Dates: start: 20040101
  2. ALTACE [Suspect]
     Indication: HYPERTENSION
     Dosage: 10 MG DAILY PO
     Route: 048
  3. ALTACE [Suspect]
     Indication: HYPERTENSION
     Dosage: 20 MG DAILY PO
     Route: 048
  4. ALTACE [Suspect]
     Indication: HYPERTENSION
     Dosage: 30 MG DAILY PO
     Route: 048
  5. ALTACE [Suspect]
     Indication: HYPERTENSION
     Dosage: 40 MG DAILY PO
     Route: 048
     Dates: start: 20040829

REACTIONS (8)
  - BLOOD PRESSURE SYSTOLIC ABNORMAL [None]
  - CAROTID ARTERY STENOSIS [None]
  - FEELING HOT [None]
  - HEART RATE DECREASED [None]
  - HYPERTENSION [None]
  - PYREXIA [None]
  - RENAL IMPAIRMENT [None]
  - URETERIC OBSTRUCTION [None]
